FAERS Safety Report 7997390-X (Version None)
Quarter: 2011Q4

REPORT INFORMATION
  Report Type: 
  Country: None (occurrence: None)
  Receive Date: 20111221
  Receipt Date: 20111210
  Transmission Date: 20120403
  Serious: Yes (Hospitalization)
  Sender: FDA-Public Use
  Company Number: US-JNJFOC-20090203411

PATIENT
  Sex: Male
  Weight: 101 kg

DRUGS (20)
  1. DOXORUBICIN HCL [Suspect]
     Indication: BURKITT'S LYMPHOMA
     Route: 042
     Dates: start: 20090128, end: 20090412
  2. CYCLOPHOSPHAMIDE [Suspect]
     Route: 042
     Dates: end: 20090412
  3. CYTARABINE [Suspect]
     Indication: BURKITT'S LYMPHOMA
     Route: 065
     Dates: start: 20090130
  4. CYCLOPHOSPHAMIDE [Suspect]
     Dosage: DAYS 2-5
     Route: 042
     Dates: start: 20090129, end: 20090201
  5. IFOSFAMIDE [Suspect]
     Indication: BURKITT'S LYMPHOMA
     Route: 065
     Dates: start: 20090128, end: 20090412
  6. RITUXAN [Suspect]
     Route: 042
     Dates: start: 20090128
  7. CYCLOPHOSPHAMIDE [Suspect]
     Indication: BURKITT'S LYMPHOMA
     Route: 042
     Dates: start: 20090128
  8. METHOTREXATE [Suspect]
     Indication: BURKITT'S LYMPHOMA
     Route: 042
     Dates: start: 20090206
  9. RITUXAN [Suspect]
     Route: 042
     Dates: start: 20090126
  10. CYTARABINE [Suspect]
     Route: 065
     Dates: start: 20090128
  11. RITUXAN [Suspect]
     Route: 042
     Dates: end: 20090412
  12. METHOTREXATE [Suspect]
     Route: 042
     Dates: end: 20090412
  13. DOXORUBICIN HCL [Suspect]
     Dosage: CYCLES 1-6
     Route: 042
  14. CYTARABINE [Suspect]
     Route: 065
     Dates: end: 20090412
  15. FILGRASTIM [Suspect]
     Indication: BURKITT'S LYMPHOMA
     Route: 065
     Dates: start: 20090128, end: 20090412
  16. ETOPOSIDE [Suspect]
     Indication: BURKITT'S LYMPHOMA
     Route: 065
     Dates: start: 20090128, end: 20090412
  17. RITUXAN [Suspect]
     Indication: BURKITT'S LYMPHOMA
     Route: 042
     Dates: start: 20090204
  18. VINCRISTINE [Suspect]
     Indication: BURKITT'S LYMPHOMA
     Route: 042
     Dates: start: 20090128, end: 20090412
  19. METHOTREXATE [Suspect]
     Route: 042
     Dates: start: 20090128
  20. LEUCOVORIN CALCIUM [Suspect]
     Indication: BURKITT'S LYMPHOMA
     Route: 065
     Dates: start: 20090128, end: 20090412

REACTIONS (9)
  - PSEUDOMONAS INFECTION [None]
  - THROMBOCYTOPENIA [None]
  - PYREXIA [None]
  - BLOOD SODIUM ABNORMAL [None]
  - BLOOD PHOSPHORUS DECREASED [None]
  - SYSTOLIC DYSFUNCTION [None]
  - HYPOCALCAEMIA [None]
  - BLOOD CREATININE INCREASED [None]
  - LEUKOPENIA [None]
